FAERS Safety Report 5290432-4 (Version None)
Quarter: 2007Q2

REPORT INFORMATION
  Report Type: 
  Country: None (occurrence: None)
  Receive Date: 20070404
  Receipt Date: 20070404
  Transmission Date: 20071010
  Serious: No
  Sender: FDA-Public Use
  Company Number: None

PATIENT

DRUGS (2)
  1. GLUCOPHAGE [Suspect]
     Dosage: TABLET
  2. GRISEOFULVIN [Suspect]

REACTIONS (6)
  - DIARRHOEA [None]
  - DRUG DISPENSING ERROR [None]
  - HEADACHE [None]
  - MEDICATION ERROR [None]
  - NAUSEA [None]
  - WRONG DRUG ADMINISTERED [None]
